FAERS Safety Report 7404332-4 (Version None)
Quarter: 2011Q2

REPORT INFORMATION
  Report Type: 
  Country: None (occurrence: None)
  Receive Date: 20110408
  Receipt Date: 20110330
  Transmission Date: 20111010
  Serious: Yes (Hospitalization)
  Sender: FDA-Public Use
  Company Number: JP-AMGEN-JPNCT2011015355

PATIENT
  Age: 77 Year
  Sex: Male
  Weight: 66 kg

DRUGS (4)
  1. PANITUMUMAB [Suspect]
     Indication: COLORECTAL CANCER
     Dosage: 6 MG/KG, Q2WK
     Route: 041
     Dates: start: 20100720
  2. FLUOROURACIL [Concomitant]
     Indication: COLORECTAL CANCER
     Route: 041
     Dates: start: 20100907, end: 20101116
  3. CALCIUM LEVOFOLINATE [Concomitant]
     Indication: COLORECTAL CANCER
     Route: 041
     Dates: start: 20100907, end: 20101116
  4. IRINOTECAN HCL [Concomitant]
     Indication: COLORECTAL CANCER
     Route: 041
     Dates: start: 20100907, end: 20101116

REACTIONS (4)
  - CONVULSION [None]
  - HYPOCALCAEMIA [None]
  - DERMATITIS ACNEIFORM [None]
  - HYPOMAGNESAEMIA [None]
